FAERS Safety Report 18006611 (Version 7)
Quarter: 2022Q3

REPORT INFORMATION
  Report Type: Report from Study
  Country: BR (occurrence: BR)
  Receive Date: 20200710
  Receipt Date: 20220915
  Transmission Date: 20221027
  Serious: Yes (Hospitalization)
  Sender: FDA-Public Use
  Company Number: BR-UCBSA-2020026659

PATIENT
  Age: 67 Year
  Sex: Female
  Weight: 57 kg

DRUGS (15)
  1. CERTOLIZUMAB PEGOL [Suspect]
     Active Substance: CERTOLIZUMAB PEGOL
     Indication: Rheumatoid arthritis
     Dosage: 400 MILLIGRAM, EV 4 WEEKS
     Route: 058
     Dates: start: 202003
  2. CERTOLIZUMAB PEGOL [Suspect]
     Active Substance: CERTOLIZUMAB PEGOL
     Dosage: 200 MILLIGRAM, EV 15 DAYS
  3. CERTOLIZUMAB PEGOL [Suspect]
     Active Substance: CERTOLIZUMAB PEGOL
     Dosage: 400 MILLIGRAM, EV 4 WEEKS
     Route: 058
     Dates: start: 20200424, end: 202206
  4. AMLODIPINE BESYLATE [Concomitant]
     Active Substance: AMLODIPINE BESYLATE
     Indication: Hypertension
     Dosage: UNK
     Route: 048
  5. ENALAPRIL [Concomitant]
     Active Substance: ENALAPRIL
     Indication: Hypertension
     Dosage: UNK
     Route: 048
  6. NPH INSULIN [Concomitant]
     Active Substance: INSULIN BEEF
     Indication: Diabetes mellitus
     Dosage: UNK
     Route: 058
  7. ATENOLOL [Concomitant]
     Active Substance: ATENOLOL
     Indication: Infarction
     Dosage: 1 DOSAGE FORM, ONCE DAILY (QD)
     Route: 048
  8. HUMULINA [Concomitant]
     Indication: Diabetes mellitus
     Dosage: 2 APPLICATIONS PER DAY 20UN EACH
     Route: 058
     Dates: start: 2017
  9. CARVEDILOL [Concomitant]
     Active Substance: CARVEDILOL
     Indication: Infarction
     Dosage: 3 DOSAGE FORM A DAY
     Route: 048
  10. CARVEDILOL [Concomitant]
     Active Substance: CARVEDILOL
     Indication: Myocardial infarction
  11. ATORVASTATIN [Concomitant]
     Active Substance: ATORVASTATIN
     Indication: Infarction
     Dosage: 1 DOSAGE FORM, ONCE DAILY (QD)
     Route: 048
  12. SPIRONOLACTONE [Concomitant]
     Active Substance: SPIRONOLACTONE
     Indication: Infarction
     Dosage: 1 DOSAGE FORM, ONCE DAILY (QD)
     Route: 048
  13. SPIRONOLACTONE [Concomitant]
     Active Substance: SPIRONOLACTONE
     Indication: Myocardial infarction
  14. ASPIRIN [Concomitant]
     Active Substance: ASPIRIN
     Indication: Infarction
     Dosage: 1 DOSAGE FORM, ONCE DAILY (QD)
     Route: 048
  15. INSULIN NOS [Concomitant]
     Active Substance: INSULIN NOS
     Indication: Diabetes mellitus
     Dosage: 2 APPLICATION PER DAY
     Route: 058

REACTIONS (5)
  - Myocardial infarction [Recovering/Resolving]
  - Weight increased [Not Recovered/Not Resolved]
  - Angioplasty [Recovered/Resolved]
  - Stent placement [Recovered/Resolved]
  - Drug ineffective [Unknown]

NARRATIVE: CASE EVENT DATE: 20200601
